FAERS Safety Report 9549796 (Version 2)
Quarter: 2013Q3

REPORT INFORMATION
  Report Type: Spontaneous
  Country: US (occurrence: US)
  Receive Date: 20130924
  Receipt Date: 20130926
  Transmission Date: 20140515
  Serious: Yes (Hospitalization, Other)
  Sender: FDA-Public Use
  Company Number: US-TEVA-433569USA

PATIENT
  Sex: Male

DRUGS (4)
  1. COPAXONE [Suspect]
     Indication: MULTIPLE SCLEROSIS
  2. BACLOFEN [Concomitant]
  3. ZANAFLEX [Concomitant]
  4. RAPAFLOW [Concomitant]

REACTIONS (13)
  - Aspiration [Unknown]
  - Immunosuppression [Unknown]
  - Gastrointestinal carcinoma [Unknown]
  - Fungal infection [Unknown]
  - Lung infection [Unknown]
  - Multiple sclerosis relapse [Unknown]
  - Gastrooesophageal reflux disease [Unknown]
  - Drug ineffective [Unknown]
  - Nasopharyngitis [Unknown]
  - Cough [Unknown]
  - Rhinorrhoea [Unknown]
  - Throat irritation [Unknown]
  - Gastrointestinal disorder [Unknown]
